FAERS Safety Report 7166572-1 (Version None)
Quarter: 2010Q4

REPORT INFORMATION
  Report Type: 
  Country: None (occurrence: None)
  Receive Date: 20101216
  Receipt Date: 20101206
  Transmission Date: 20110411
  Serious: Yes (Hospitalization, Other)
  Sender: FDA-Public Use
  Company Number: US-JNJFOC-20101203153

PATIENT
  Sex: Male

DRUGS (1)
  1. REOPRO [Suspect]
     Indication: ILL-DEFINED DISORDER

REACTIONS (2)
  - CORONARY ARTERY DISEASE [None]
  - THROMBOSIS IN DEVICE [None]
